FAERS Safety Report 7230878-8 (Version None)
Quarter: 2011Q1

REPORT INFORMATION
  Report Type: 
  Country: None (occurrence: None)
  Receive Date: 20110118
  Receipt Date: 20110111
  Transmission Date: 20110831
  Serious: Yes (Other)
  Sender: FDA-Public Use
  Company Number: BE-SANOFI-AVENTIS-2011SA001902

PATIENT
  Sex: Female

DRUGS (1)
  1. TRIAMCINOLONE ACETONIDE [Suspect]
     Route: 065
     Dates: start: 20090101, end: 20090101

REACTIONS (1)
  - CYTOMEGALOVIRUS CHORIORETINITIS [None]
